APPROVED DRUG PRODUCT: PRIMATENE MIST
Active Ingredient: EPINEPHRINE
Strength: 0.125MG/INH
Dosage Form/Route: AEROSOL, METERED;INHALATION
Application: N205920 | Product #001
Applicant: ARMSTRONG PHARMACEUTICALS INC
Approved: Nov 7, 2018 | RLD: Yes | RS: Yes | Type: OTC

PATENTS:
Patent 8367734 | Expires: Jan 26, 2026